FAERS Safety Report 8668251 (Version 2)
Quarter: 2014Q1

REPORT INFORMATION
  Report Type: Spontaneous
  Country: CA (occurrence: CA)
  Receive Date: 20120717
  Receipt Date: 20140218
  Transmission Date: 20141002
  Serious: Yes (Other)
  Sender: FDA-Public Use
  Company Number: CA-ROCHE-1088810

PATIENT
  Sex: Female

DRUGS (6)
  1. XOLAIR [Suspect]
     Indication: ASTHMA
     Route: 058
     Dates: start: 20120413
  2. SINGULAIR [Concomitant]
  3. ADVAIR [Concomitant]
  4. FLOVENT [Concomitant]
  5. VENTOLIN [Concomitant]
  6. NASONEX [Concomitant]

REACTIONS (2)
  - Crohn^s disease [Unknown]
  - Sinusitis [Unknown]
